FAERS Safety Report 11402619 (Version 1)
Quarter: 2015Q3

REPORT INFORMATION
  Report Type: Spontaneous
  Country: US (occurrence: US)
  Receive Date: 20150821
  Receipt Date: 20150821
  Transmission Date: 20151125
  Serious: No
  Sender: FDA-Public Use
  Company Number: US-ROCHE-1326959

PATIENT
  Sex: Male

DRUGS (4)
  1. PEGASYS [Suspect]
     Active Substance: PEGINTERFERON ALFA-2A
     Indication: CHRONIC HEPATITIS C
     Route: 058
     Dates: start: 20130429
  2. COPEGUS [Suspect]
     Active Substance: RIBAVIRIN
     Dosage: DIVIDED IN TWO DOSES.
     Route: 048
  3. COPEGUS [Suspect]
     Active Substance: RIBAVIRIN
     Indication: CHRONIC HEPATITIS
     Dosage: DIVIDED IN TWO DOSES.
     Route: 048
  4. BOCEPREVIR [Suspect]
     Active Substance: BOCEPREVIR
     Indication: CHRONIC HEPATITIS
     Route: 065
     Dates: start: 20130603

REACTIONS (2)
  - Hypotension [Unknown]
  - Anaemia [Unknown]
